FAERS Safety Report 10172522 (Version 6)
Quarter: 2015Q4

REPORT INFORMATION
  Report Type: Report from Study
  Country: US (occurrence: US)
  Receive Date: 20140515
  Receipt Date: 20151217
  Transmission Date: 20160304
  Serious: Yes (Other)
  Sender: FDA-Public Use
  Company Number: US-SANOFI-AVENTIS-2013SA049816

PATIENT
  Age: 57 Year
  Sex: Female

DRUGS (2)
  1. AUBAGIO [Suspect]
     Active Substance: TERIFLUNOMIDE
     Indication: MULTIPLE SCLEROSIS
     Route: 048
     Dates: start: 20130318
  2. XANAX [Concomitant]
     Active Substance: ALPRAZOLAM
     Indication: NERVOUS SYSTEM DISORDER

REACTIONS (14)
  - Lacrimation increased [Unknown]
  - Glare [Unknown]
  - Fall [Unknown]
  - Vitamin D decreased [Unknown]
  - Memory impairment [Unknown]
  - Optic nerve injury [Unknown]
  - Loss of consciousness [Unknown]
  - Anaemia [Unknown]
  - Erythema of eyelid [Unknown]
  - Pain [Unknown]
  - Depression [Unknown]
  - Alopecia [Unknown]
  - Seizure [Unknown]
  - Eye pain [Unknown]

NARRATIVE: CASE EVENT DATE: 2014
